FAERS Safety Report 4644894-3 (Version None)
Quarter: 2005Q2

REPORT INFORMATION
  Report Type: 
  Country: None (occurrence: None)
  Receive Date: 20050426
  Receipt Date: 20050323
  Transmission Date: 20051028
  Serious: Yes (Hospitalization, Other)
  Sender: FDA-Public Use
  Company Number: US-AMGEN-US122969

PATIENT
  Sex: Female

DRUGS (14)
  1. KINERET [Suspect]
     Indication: RHEUMATOID ARTHRITIS
     Route: 058
     Dates: start: 20020123, end: 20050210
  2. METHOTREXATE [Suspect]
  3. MEDROL [Suspect]
  4. OXYCONTIN [Concomitant]
  5. LORCET-HD [Concomitant]
  6. SYNTHROID [Concomitant]
  7. NIFEREX [Concomitant]
  8. AMBIEN [Concomitant]
  9. ZYRTEC [Concomitant]
  10. VIOXX [Concomitant]
  11. PRILOSEC [Concomitant]
  12. FOSAMAX [Concomitant]
  13. ULTRAM [Concomitant]
  14. TUMS [Concomitant]

REACTIONS (1)
  - PNEUMONITIS CRYPTOCOCCAL [None]
